FAERS Safety Report 20460092 (Version 2)
Quarter: 2022Q1

REPORT INFORMATION
  Report Type: Spontaneous
  Country: CN (occurrence: CN)
  Receive Date: 20220211
  Receipt Date: 20220218
  Transmission Date: 20220424
  Serious: Yes (Other)
  Sender: FDA-Public Use
  Company Number: CN-JNJFOC-20220221094

PATIENT
  Age: 4 Decade
  Sex: Male
  Weight: 55.5 kg

DRUGS (2)
  1. RHINOCORT AQUA [Suspect]
     Active Substance: BUDESONIDE
     Indication: Rhinitis
     Dosage: ^SPRAY ONE SPRAY TO EACH NOSTRIL EACH TIME (IF THE PATIENT FELT THAT THE FIRST SPRAY WAS NOT ENOUGH,
     Route: 045
     Dates: start: 202111, end: 20211220
  2. RHINOCORT AQUA [Suspect]
     Active Substance: BUDESONIDE
     Indication: Rhinitis allergic
     Dosage: SPRAY ONE SPRAY TO EACH NOSTRIL EACH TIME (IF THE PATIENT FELT THAT THE FIRST SPRAY WAS NOT ENOUGH,
     Route: 045
     Dates: start: 20220110

REACTIONS (2)
  - Nasal abscess [Recovered/Resolved]
  - Nasal odour [Unknown]

NARRATIVE: CASE EVENT DATE: 20211220
